FAERS Safety Report 12582677 (Version 1)
Quarter: 2016Q3

REPORT INFORMATION
  Report Type: Spontaneous
  Country: RS (occurrence: RS)
  Receive Date: 20160722
  Receipt Date: 20160722
  Transmission Date: 20161109
  Serious: Yes (Other)
  Sender: FDA-Public Use
  Company Number: RS-ROCHE-1799371

PATIENT
  Age: 76 Year
  Sex: Female
  Weight: 80 kg

DRUGS (6)
  1. BONVIVA [Suspect]
     Active Substance: IBANDRONATE SODIUM
     Indication: OSTEOPOROSIS
     Route: 048
     Dates: start: 20150101, end: 20151231
  2. DILCORAN (SERBIA) [Concomitant]
     Dosage: LONG TERM (1/2+1/2+0)
     Route: 048
  3. BISOPROLOL [Concomitant]
     Active Substance: BISOPROLOL
     Dosage: 1/4 OF 5MG TABLET DAILY
     Route: 065
     Dates: start: 201510
  4. ZOCOR [Concomitant]
     Active Substance: SIMVASTATIN
     Indication: HYPERCHOLESTEROLAEMIA
     Dosage: LONG TERM
     Route: 048
  5. ASPIRIN. [Concomitant]
     Active Substance: ASPIRIN
     Dosage: LONG TERM
     Route: 048
  6. TRITACE COMP [Concomitant]
     Indication: HYPERTENSION
     Dosage: LONG TERM
     Route: 048

REACTIONS (1)
  - Arrhythmia [Recovered/Resolved]

NARRATIVE: CASE EVENT DATE: 201509
